FAERS Safety Report 11234610 (Version 4)
Quarter: 2018Q2

REPORT INFORMATION
  Report Type: Spontaneous
  Country: US (occurrence: US)
  Receive Date: 20150702
  Receipt Date: 20180605
  Transmission Date: 20180711
  Serious: Yes (Hospitalization, Other)
  Sender: FDA-Public Use
  Company Number: US-DSJP-DSU-2015-120142

PATIENT

DRUGS (1)
  1. BENICAR [Suspect]
     Active Substance: OLMESARTAN MEDOXOMIL
     Indication: HYPERTENSION
     Dosage: 20 MG, UNK
     Route: 048
     Dates: start: 20120501, end: 201403

REACTIONS (11)
  - Anaemia [Unknown]
  - Hypotension [Unknown]
  - Renal aneurysm [Unknown]
  - Haemorrhoids [Unknown]
  - Nephrolithiasis [Unknown]
  - Gastric xanthoma [Unknown]
  - Diverticulum intestinal [Unknown]
  - Gastrointestinal haemorrhage [Unknown]
  - Acute kidney injury [Not Recovered/Not Resolved]
  - Sprue-like enteropathy [Unknown]
  - Renal cyst [Unknown]

NARRATIVE: CASE EVENT DATE: 2014
